FAERS Safety Report 23699877 (Version 1)
Quarter: 2024Q2

REPORT INFORMATION
  Report Type: Spontaneous
  Country: FR (occurrence: FR)
  Receive Date: 20240403
  Receipt Date: 20240403
  Transmission Date: 20240715
  Serious: Yes (Hospitalization)
  Sender: FDA-Public Use
  Company Number: None

PATIENT
  Age: 69 Year
  Sex: Female
  Weight: 83.4 kg

DRUGS (5)
  1. DAPAGLIFLOZIN [Suspect]
     Active Substance: DAPAGLIFLOZIN
     Indication: Type 2 diabetes mellitus
     Dosage: 10 MG, QD
     Route: 048
     Dates: start: 20240206, end: 20240304
  2. OZEMPIC [Suspect]
     Active Substance: SEMAGLUTIDE
     Indication: Type 2 diabetes mellitus
     Dosage: 0.25 MG, QW
     Route: 058
     Dates: start: 20240206, end: 20240206
  3. ESIDREX [Suspect]
     Active Substance: HYDROCHLOROTHIAZIDE
     Indication: Chronic kidney disease
     Dosage: UNK
     Route: 048
     Dates: start: 20240215, end: 20240304
  4. RITUXIMAB [Suspect]
     Active Substance: RITUXIMAB
     Indication: Autoimmune blistering disease
     Dosage: UNK
     Route: 042
     Dates: start: 20240210, end: 20240222
  5. SALAZOPYRINE [Suspect]
     Active Substance: SULFASALAZINE
     Indication: Autoimmune blistering disease
     Dosage: 2000 MG, QD
     Route: 048
     Dates: start: 20240215, end: 20240301

REACTIONS (3)
  - Dermatitis bullous [Recovering/Resolving]
  - Disease recurrence [Recovering/Resolving]
  - Rash maculo-papular [Recovering/Resolving]

NARRATIVE: CASE EVENT DATE: 20240229
